FAERS Safety Report 8075634-6 (Version None)
Quarter: 2012Q1

REPORT INFORMATION
  Report Type: 
  Country: None (occurrence: None)
  Receive Date: 20120127
  Receipt Date: 20120117
  Transmission Date: 20120608
  Serious: Yes (Other)
  Sender: FDA-Public Use
  Company Number: US-PURDUE-USA-2012-0081132

PATIENT
  Sex: Female

DRUGS (1)
  1. DILAUDID-HP [Suspect]
     Indication: PAIN
     Dosage: 1 MG, SEE TEXT
     Route: 042
     Dates: start: 20110201

REACTIONS (13)
  - PAIN IN EXTREMITY [None]
  - LOSS OF CONSCIOUSNESS [None]
  - INCORRECT DOSE ADMINISTERED [None]
  - HYPOTENSION [None]
  - THROAT TIGHTNESS [None]
  - NECK PAIN [None]
  - RETCHING [None]
  - DYSPNOEA [None]
  - VOMITING [None]
  - PARALYSIS [None]
  - MUSCULOSKELETAL PAIN [None]
  - CHEST PAIN [None]
  - CHEST DISCOMFORT [None]
